FAERS Safety Report 24221590 (Version 6)
Quarter: 2025Q1

REPORT INFORMATION
  Report Type: Report from Study
  Country: US (occurrence: US)
  Receive Date: 20240819
  Receipt Date: 20250328
  Transmission Date: 20250408
  Serious: Yes (Other)
  Sender: NOVARTIS
  Company Number: US-002147023-NVSC2024US150869

PATIENT
  Sex: Female

DRUGS (2)
  1. KESIMPTA [Suspect]
     Active Substance: OFATUMUMAB
     Indication: Product used for unknown indication
     Route: 065
     Dates: start: 20240530
  2. GABAPENTIN [Concomitant]
     Active Substance: GABAPENTIN
     Indication: Product used for unknown indication
     Route: 065

REACTIONS (14)
  - Multiple sclerosis [Unknown]
  - Neuralgia [Not Recovered/Not Resolved]
  - Condition aggravated [Not Recovered/Not Resolved]
  - Balance disorder [Recovering/Resolving]
  - Fatigue [Recovering/Resolving]
  - Feeling of body temperature change [Not Recovered/Not Resolved]
  - Memory impairment [Unknown]
  - Arthralgia [Recovering/Resolving]
  - Urinary tract infection [Recovered/Resolved]
  - Arthritis [Unknown]
  - Pain in extremity [Unknown]
  - Mental disorder [Unknown]
  - Anxiety [Not Recovered/Not Resolved]
  - Depression [Not Recovered/Not Resolved]
